FAERS Safety Report 6349807-4 (Version None)
Quarter: 2009Q3

REPORT INFORMATION
  Report Type: 
  Country: None (occurrence: None)
  Receive Date: 20090911
  Receipt Date: 20090827
  Transmission Date: 20100115
  Serious: Yes (Hospitalization)
  Sender: FDA-Public Use
  Company Number: FR-MERCK-0908FRA00062

PATIENT
  Age: 86 Year
  Sex: Male

DRUGS (5)
  1. COZAAR [Suspect]
     Indication: HYPERTENSION
     Route: 048
     Dates: start: 19990101, end: 20080101
  2. COZAAR [Suspect]
     Route: 048
     Dates: start: 20080101
  3. HYZAAR [Suspect]
     Indication: HYPERTENSION
     Route: 048
     Dates: start: 20080101, end: 20080101
  4. CLOPIDOGREL BISULFATE [Concomitant]
     Route: 048
  5. NAFRONYL OXALATE [Concomitant]
     Route: 048

REACTIONS (3)
  - COMA [None]
  - DEPRESSION [None]
  - HYPONATRAEMIA [None]
